FAERS Safety Report 4807801-6 (Version None)
Quarter: 2005Q4

REPORT INFORMATION
  Report Type: 
  Country: None (occurrence: None)
  Receive Date: 20051020
  Receipt Date: 20050922
  Transmission Date: 20060501
  Serious: Yes (Other)
  Sender: FDA-Public Use
  Company Number: 2005133885

PATIENT
  Sex: Female

DRUGS (1)
  1. CYTOTEC [Suspect]
     Indication: STOMACH DISCOMFORT
     Dosage: ORAL
     Route: 048

REACTIONS (6)
  - ANGIOPATHY [None]
  - BURNING SENSATION [None]
  - DYSPEPSIA [None]
  - ERYTHEMA [None]
  - IRRITABILITY [None]
  - VAGINAL HAEMORRHAGE [None]
